FAERS Safety Report 21928120 (Version 4)
Quarter: 2023Q2

REPORT INFORMATION
  Report Type: Report from Study
  Country: TR (occurrence: TR)
  Receive Date: 20230130
  Receipt Date: 20230614
  Transmission Date: 20230721
  Serious: Yes (Death, Hospitalization)
  Sender: FDA-Public Use
  Company Number: TR-JAZZ-2023-TR-000462

PATIENT
  Age: 74 Year
  Sex: Male
  Weight: 59 kg

DRUGS (6)
  1. LURBINECTEDIN [Suspect]
     Active Substance: LURBINECTEDIN
     Indication: Small cell lung cancer extensive stage
     Dosage: 5.66 MG,1 IN 3 WEEK
     Route: 042
     Dates: start: 20221223, end: 20230113
  2. ATEZOLIZUMAB [Suspect]
     Active Substance: ATEZOLIZUMAB
     Indication: Small cell lung cancer extensive stage
     Dosage: 1200 MG ONCE IN 3 WEEKS
     Route: 042
     Dates: start: 20220826, end: 20221223
  3. ATEZOLIZUMAB [Suspect]
     Active Substance: ATEZOLIZUMAB
     Dosage: 1200 MG ONCE IN 3 WEEKS
     Route: 042
     Dates: start: 20230126
  4. CARBOPLATIN [Suspect]
     Active Substance: CARBOPLATIN
     Indication: Small cell lung cancer extensive stage
     Dosage: 430 MG ONCE IN 3 WEEKS
     Dates: start: 20220826, end: 20221031
  5. ETOPOSIDE [Suspect]
     Active Substance: ETOPOSIDE
     Indication: Small cell lung cancer extensive stage
     Dosage: 170 MILLIGRAM
     Route: 042
     Dates: start: 20220826, end: 20221102
  6. ETOPOSIDE [Suspect]
     Active Substance: ETOPOSIDE
     Dosage: 172 MILLIGRAM
     Route: 042
     Dates: start: 20221102

REACTIONS (2)
  - Septic shock [Fatal]
  - Platelet count decreased [Not Recovered/Not Resolved]

NARRATIVE: CASE EVENT DATE: 20230102
